FAERS Safety Report 4608239-7 (Version None)
Quarter: 2005Q2

REPORT INFORMATION
  Report Type: 
  Country: None (occurrence: None)
  Receive Date: 20050303
  Receipt Date: 20041103
  Transmission Date: 20051028
  Serious: No
  Sender: FDA-Public Use
  Company Number: 702302

PATIENT
  Age: 33 Year
  Sex: Female

DRUGS (3)
  1. AMEVIVE [Suspect]
     Indication: PSORIASIS
     Dosage: 15 MG; QW; IM
     Route: 030
     Dates: start: 20040720
  2. VITAMIN E [Concomitant]
  3. IRON [Concomitant]

REACTIONS (1)
  - AMENORRHOEA [None]
